FAERS Safety Report 20035113 (Version 2)
Quarter: 2021Q4

REPORT INFORMATION
  Report Type: Spontaneous
  Country: DE (occurrence: DE)
  Receive Date: 20211104
  Receipt Date: 20211108
  Transmission Date: 20220303
  Serious: Yes (Hospitalization)
  Sender: FDA-Public Use
  Company Number: DE-ADRED-06950-01

PATIENT
  Age: 56 Year
  Sex: Female
  Weight: 56 kg

DRUGS (8)
  1. TACROLIMUS [Suspect]
     Active Substance: TACROLIMUS
     Indication: Product used for unknown indication
     Dosage: UNK (3.5 MG, 1-0-0-0)
  2. MYCOPHENOLATE SODIUM [Suspect]
     Active Substance: MYCOPHENOLATE SODIUM
     Indication: Product used for unknown indication
     Dosage: UNK (500 MG, 1-0-1-0)
  3. ASPIRIN [Concomitant]
     Active Substance: ASPIRIN
     Dosage: UNK(100 MG, 0-1-1-0)
  4. CALCITRIOL [Concomitant]
     Active Substance: CALCITRIOL
     Dosage: UNK(0.25 MICRO G, 1-0-0-0)
  5. INSULIN ASPART [Concomitant]
     Active Substance: INSULIN ASPART
     Dosage: UNK(SCHEMA)
  6. ISOPHANE INSULIN [Concomitant]
     Active Substance: INSULIN NOS
     Dosage: UNK(4 IE, 1-0-0-0)
  7. SIMVASTATIN [Concomitant]
     Active Substance: SIMVASTATIN
     Dosage: UNK(20 MG, 0-0-1-0)
  8. SODIUM BICARBONATE [Concomitant]
     Active Substance: SODIUM BICARBONATE
     Dosage: UNK(1 G, 1-1-1-0)

REACTIONS (4)
  - General physical health deterioration [Unknown]
  - Pollakiuria [Unknown]
  - Tachypnoea [Unknown]
  - Pyrexia [Unknown]
